FAERS Safety Report 16306763 (Version 2)
Quarter: 2019Q2

REPORT INFORMATION
  Report Type: Spontaneous
  Country: FR (occurrence: FR)
  Receive Date: 20190513
  Receipt Date: 20190521
  Transmission Date: 20190711
  Serious: Yes (Congenital Anomaly)
  Sender: FDA-Public Use
  Company Number: PHHY2019FR108745

PATIENT

DRUGS (2)
  1. GILENYA [Suspect]
     Active Substance: FINGOLIMOD HYDROCHLORIDE
     Indication: FOETAL EXPOSURE DURING PREGNANCY
     Dosage: MATERNAL DOSE: UNKNOWN
     Route: 064
  2. GILENYA [Suspect]
     Active Substance: FINGOLIMOD HYDROCHLORIDE
     Dosage: MATERNAL DOSE: 1 DF, QD
     Route: 064

REACTIONS (5)
  - Foetal exposure during pregnancy [Unknown]
  - Posterior fossa syndrome [Not Recovered/Not Resolved]
  - Cerebellar hypoplasia [Unknown]
  - Brain malformation [Not Recovered/Not Resolved]
  - Cerebellar dysplasia [Unknown]

NARRATIVE: CASE EVENT DATE: 20181127
